FAERS Safety Report 14786239 (Version 3)
Quarter: 2018Q3

REPORT INFORMATION
  Report Type: Report from Study
  Country: JP (occurrence: JP)
  Receive Date: 20180420
  Receipt Date: 20180824
  Transmission Date: 20181010
  Serious: Yes (Other)
  Sender: FDA-Public Use
  Company Number: PHJP2018JP009050

PATIENT
  Age: 62 Year
  Sex: Male
  Weight: 57.9 kg

DRUGS (2)
  1. VOTRIENT [Suspect]
     Active Substance: PAZOPANIB HYDROCHLORIDE
     Dosage: 400 MG, QD
     Route: 048
     Dates: start: 20160208, end: 20160620
  2. VOTRIENT [Suspect]
     Active Substance: PAZOPANIB HYDROCHLORIDE
     Indication: RENAL CELL CARCINOMA STAGE IV
     Dosage: 800 MG, QD
     Route: 048
     Dates: start: 20160125, end: 20160207

REACTIONS (6)
  - Diarrhoea [Recovered/Resolved]
  - Liver disorder [Recovering/Resolving]
  - Headache [Recovered/Resolved]
  - Gastrointestinal disorder [Unknown]
  - Hypertension [Recovered/Resolved]
  - Proteinuria [Not Recovered/Not Resolved]

NARRATIVE: CASE EVENT DATE: 20160207
